FAERS Safety Report 20481838 (Version 2)
Quarter: 2022Q1

REPORT INFORMATION
  Report Type: Spontaneous
  Country: US (occurrence: US)
  Receive Date: 20220216
  Receipt Date: 20220317
  Transmission Date: 20220423
  Serious: Yes (Other)
  Sender: FDA-Public Use
  Company Number: US-009507513-2202USA003221

PATIENT
  Age: 72 Year
  Sex: Male
  Weight: 115.19 kg

DRUGS (9)
  1. MOLNUPIRAVIR [Suspect]
     Active Substance: MOLNUPIRAVIR
     Indication: COVID-19 treatment
     Dosage: 200 MG TAKE 4 TABS TWICE DAILY
     Route: 048
     Dates: start: 20220125, end: 20220127
  2. AZITHROMYCIN [Suspect]
     Active Substance: AZITHROMYCIN
     Dosage: UNK
     Dates: end: 20220127
  3. LEVETIRACETAM [Concomitant]
     Active Substance: LEVETIRACETAM
     Dosage: 1 TABLET, Q12H
     Route: 048
  4. DILTIAZEM [Concomitant]
     Active Substance: DILTIAZEM
     Indication: Cardiac disorder
     Dosage: 1 CAPSULE, QD
     Route: 048
  5. PROAIR HFA [Concomitant]
     Active Substance: ALBUTEROL SULFATE
     Dosage: STRENGTH: 90 MCG/ACTUATION AEROSOL INHALER
  6. MOMETASONA [MOMETASONE] [Concomitant]
     Dosage: 2 SPRAY EVERY DAY IN EACH NOSTRIL; STRENGTH: 50 MCG/ACTUATION
     Route: 045
  7. AZELASTINE [Concomitant]
     Active Substance: AZELASTINE
     Dosage: 2 SPRAY 2 TIMES EVERY DAY IN EACH NOSTRIL; STRENGTH:137 MCG (0.1%)
     Route: 045
  8. DIGOXIN [Concomitant]
     Active Substance: DIGOXIN
     Dosage: 1 DOSAGE FORM, QD
     Route: 048
  9. ELIQUIS [Concomitant]
     Active Substance: APIXABAN
     Dosage: 1 TABLET 2 TIMES EVERY DAY
     Route: 048

REACTIONS (1)
  - Seizure [Unknown]

NARRATIVE: CASE EVENT DATE: 20220127
